FAERS Safety Report 10192850 (Version 1)
Quarter: 2014Q2

REPORT INFORMATION
  Report Type: Spontaneous
  Country: US (occurrence: US)
  Receive Date: 20140523
  Receipt Date: 20140523
  Transmission Date: 20141212
  Serious: No
  Sender: FDA-Public Use
  Company Number: US-TEVA-481833USA

PATIENT
  Age: 57 Year
  Sex: Male
  Weight: 82.63 kg

DRUGS (3)
  1. PROAIR HFA [Suspect]
     Indication: DYSPNOEA
     Dates: start: 201402
  2. PROAIR HFA [Suspect]
     Indication: WHEEZING
  3. METHADONE [Concomitant]
     Indication: ARTHRALGIA

REACTIONS (1)
  - Breath alcohol test positive [Unknown]
